FAERS Safety Report 19943084 (Version 7)
Quarter: 2024Q1

REPORT INFORMATION
  Report Type: Spontaneous
  Country: CA (occurrence: CA)
  Receive Date: 20211011
  Receipt Date: 20240213
  Transmission Date: 20240410
  Serious: Yes (Other)
  Sender: FDA-Public Use
  Company Number: CA-NAPPMUNDI-GBR-2021-0091195

PATIENT
  Age: 40 Year
  Sex: Female

DRUGS (35)
  1. MORPHINE SULFATE [Suspect]
     Active Substance: MORPHINE SULFATE
     Indication: Migraine
     Dosage: UNK
     Route: 065
  2. ACETAMINOPHEN [Suspect]
     Active Substance: ACETAMINOPHEN
     Indication: Migraine
     Dosage: UNK
     Route: 065
  3. ALLOPURINOL [Suspect]
     Active Substance: ALLOPURINOL
     Indication: Migraine
     Dosage: UNK
     Route: 065
  4. BOTULINUM TOXIN TYPE A [Suspect]
     Active Substance: BOTULINUM TOXIN TYPE A
     Indication: Migraine
     Dosage: UNK
     Route: 065
  5. CYCLOBENZAPRINE HYDROCHLORIDE\DICLOFENAC POTASSIUM [Suspect]
     Active Substance: CYCLOBENZAPRINE HYDROCHLORIDE\DICLOFENAC POTASSIUM
     Indication: Product used for unknown indication
     Dosage: UNK
     Route: 065
  6. CYCLOBENZAPRINE HYDROCHLORIDE\DICLOFENAC POTASSIUM [Suspect]
     Active Substance: CYCLOBENZAPRINE HYDROCHLORIDE\DICLOFENAC POTASSIUM
     Dosage: UNK
     Route: 065
  7. CYCLOBENZAPRINE HYDROCHLORIDE\DICLOFENAC POTASSIUM [Suspect]
     Active Substance: CYCLOBENZAPRINE HYDROCHLORIDE\DICLOFENAC POTASSIUM
     Dosage: UNK
     Route: 065
  8. ERENUMAB-AOOE [Suspect]
     Active Substance: ERENUMAB-AOOE
     Indication: Migraine
     Dosage: UNK
     Route: 058
  9. ERENUMAB-AOOE [Suspect]
     Active Substance: ERENUMAB-AOOE
     Dosage: UNK
     Route: 065
  10. ERGOCALCIFEROL\HEXACHLOROPHENE\LIDOCAINE [Suspect]
     Active Substance: ERGOCALCIFEROL\HEXACHLOROPHENE\LIDOCAINE
     Indication: Migraine
     Dosage: UNK
     Route: 065
  11. FLUPENTIXOL\NORTRIPTYLINE [Suspect]
     Active Substance: FLUPENTIXOL\NORTRIPTYLINE
     Indication: Migraine
     Dosage: 1 DF, UNK
     Route: 065
  12. GRAVOL [Suspect]
     Active Substance: DIMENHYDRINATE
     Indication: Migraine
     Dosage: UNK
     Route: 065
  13. MEFENAMIC ACID [Suspect]
     Active Substance: MEFENAMIC ACID
     Indication: Migraine
     Dosage: UNK
     Route: 065
  14. PROPRANOLOL HYDROCHLORIDE [Suspect]
     Active Substance: PROPRANOLOL HYDROCHLORIDE
     Indication: Migraine
     Dosage: 1 DF
     Route: 065
  15. PROPRANOLOL HYDROCHLORIDE [Suspect]
     Active Substance: PROPRANOLOL HYDROCHLORIDE
     Dosage: 1 DOSAGE FORM
     Route: 065
  16. PROPRANOLOL HYDROCHLORIDE [Suspect]
     Active Substance: PROPRANOLOL HYDROCHLORIDE
     Dosage: UNK
     Route: 065
  17. PYRIDOXINE\TRYPTOPHAN [Suspect]
     Active Substance: PYRIDOXINE\TRYPTOPHAN
     Indication: Migraine
     Dosage: UNK
     Route: 065
  18. ZOLMITRIPTAN [Suspect]
     Active Substance: ZOLMITRIPTAN
     Indication: Migraine
     Dosage: 1 DF
     Route: 058
  19. ACETAMINOPHEN AND CODEINE [Suspect]
     Active Substance: ACETAMINOPHEN\CODEINE PHOSPHATE
     Indication: Migraine
     Dosage: UNK
     Route: 065
  20. AIMOVIG [Suspect]
     Active Substance: ERENUMAB-AOOE
     Indication: Migraine
     Dosage: UNK
     Route: 058
  21. AIMOVIG [Suspect]
     Active Substance: ERENUMAB-AOOE
     Dosage: UNK
     Route: 065
  22. ELAVIL [Suspect]
     Active Substance: AMITRIPTYLINE HYDROCHLORIDE
     Indication: Migraine
     Dosage: UNK
     Route: 065
  23. NORTRIPTYLINE [Suspect]
     Active Substance: NORTRIPTYLINE
     Indication: Migraine
     Dosage: 1 DOSAGE FORM, 1 EVERY 1 DAYS
     Route: 065
  24. NORTRIPTYLINE [Suspect]
     Active Substance: NORTRIPTYLINE
     Dosage: 1 DOSAGE FORM, DAILY
     Route: 065
  25. NORTRIPTYLINE [Suspect]
     Active Substance: NORTRIPTYLINE
     Dosage: 1 DF, DAILY
     Route: 065
  26. TOPIRAMATE [Suspect]
     Active Substance: TOPIRAMATE
     Indication: Migraine
     Dosage: 100 MG, BID
     Route: 048
  27. CYCLOBENZAPRINE [Suspect]
     Active Substance: CYCLOBENZAPRINE
     Indication: Product used for unknown indication
     Dosage: UNK
     Route: 065
  28. ERGOCALCIFEROL [Suspect]
     Active Substance: ERGOCALCIFEROL
     Indication: Migraine
     Dosage: UNK
     Route: 065
  29. HEXACHLOROPHENE [Suspect]
     Active Substance: HEXACHLOROPHENE
     Indication: Migraine
     Dosage: UNK
     Route: 065
  30. LIDOCAINE [Suspect]
     Active Substance: LIDOCAINE
     Indication: Migraine
     Dosage: UNK
     Route: 065
  31. LAMOTRIGINE [Suspect]
     Active Substance: LAMOTRIGINE
     Indication: Migraine
     Dosage: 1 DOSAGE FORM
     Route: 065
  32. NEURONTIN [Suspect]
     Active Substance: GABAPENTIN
     Indication: Migraine
     Dosage: UNK
     Route: 065
  33. ACETAMINOPHEN AND CODEINE [Suspect]
     Active Substance: ACETAMINOPHEN\CODEINE PHOSPHATE
     Indication: Product used for unknown indication
     Dosage: UNK
     Route: 065
  34. LIDOCAINE HYDROCHLORIDE [Suspect]
     Active Substance: LIDOCAINE HYDROCHLORIDE
     Indication: Migraine
     Dosage: UNK
     Route: 065
  35. NEURONTIN [Concomitant]
     Active Substance: GABAPENTIN
     Indication: Migraine
     Dosage: UNK
     Route: 065

REACTIONS (22)
  - Discomfort [Unknown]
  - Disturbance in attention [Unknown]
  - Dizziness [Unknown]
  - Drug ineffective for unapproved indication [Unknown]
  - Drug intolerance [Unknown]
  - Fatigue [Unknown]
  - Headache [Unknown]
  - Hypotension [Unknown]
  - Mastoiditis [Unknown]
  - Myalgia [Unknown]
  - Nausea [Unknown]
  - Off label use [Unknown]
  - Otitis media [Unknown]
  - Paranasal cyst [Unknown]
  - Stress [Unknown]
  - Therapeutic response decreased [Unknown]
  - Tremor [Unknown]
  - Vascular malformation [Unknown]
  - Migraine [Unknown]
  - Therapy partial responder [Unknown]
  - Product use in unapproved indication [Unknown]
  - Drug ineffective [Unknown]
